FAERS Safety Report 9849076 (Version 1)
Quarter: 2014Q1

REPORT INFORMATION
  Report Type: Spontaneous
  Country: US (occurrence: None)
  Receive Date: 20140127
  Receipt Date: 20140127
  Transmission Date: 20141002
  Serious: Yes (Other)
  Sender: FDA-Public Use
  Company Number: None

PATIENT
  Sex: Female

DRUGS (1)
  1. BENADRYL [Suspect]
     Dosage: 3 ONCE DAILY TAKEN BY MOUTH
     Route: 048
     Dates: start: 20140122, end: 20140123

REACTIONS (3)
  - Rash erythematous [None]
  - Rash pruritic [None]
  - Tenderness [None]
